APPROVED DRUG PRODUCT: IBUPROFEN
Active Ingredient: IBUPROFEN
Strength: EQ 200MG FREE ACID AND POTASSIUM SALT
Dosage Form/Route: CAPSULE;ORAL
Application: A206568 | Product #001
Applicant: HUMANWELL PURACAP PHARMACEUTICAL WUHAN CO LTD
Approved: Jun 21, 2016 | RLD: No | RS: No | Type: OTC